FAERS Safety Report 7594233-3 (Version None)
Quarter: 2011Q3

REPORT INFORMATION
  Report Type: 
  Country: None (occurrence: None)
  Receive Date: 20110706
  Receipt Date: 20110622
  Transmission Date: 20111222
  Serious: Yes (Hospitalization)
  Sender: FDA-Public Use
  Company Number: TW-GENENTECH-320791

PATIENT
  Age: 81 Year
  Sex: Female

DRUGS (1)
  1. RITUXAN [Suspect]
     Indication: RHEUMATOID ARTHRITIS
     Dosage: 1000 MG, DAYS 1+15
     Route: 042

REACTIONS (2)
  - CARDIAC FAILURE CONGESTIVE [None]
  - GASTRIC ULCER HAEMORRHAGE [None]
